FAERS Safety Report 6862363-7 (Version None)
Quarter: 2010Q3

REPORT INFORMATION
  Report Type: 
  Country: None (occurrence: None)
  Receive Date: 20100716
  Receipt Date: 20100705
  Transmission Date: 20110219
  Serious: Yes (Death, Hospitalization)
  Sender: FDA-Public Use
  Company Number: MSTR-NO-1007S-0256

PATIENT
  Age: 82 Year
  Sex: Male

DRUGS (1)
  1. METASTRON [Suspect]
     Indication: METASTATIC PAIN
     Dosage: SINGLE DOSE, I.V.
     Dates: start: 20100415, end: 20100415

REACTIONS (6)
  - BLOOD PRESSURE DECREASED [None]
  - DEPRESSED LEVEL OF CONSCIOUSNESS [None]
  - FATIGUE [None]
  - MIOSIS [None]
  - TACHYCARDIA [None]
  - UNRESPONSIVE TO STIMULI [None]
